FAERS Safety Report 11213379 (Version 1)
Quarter: 2015Q2

REPORT INFORMATION
  Report Type: Spontaneous
  Country: UG (occurrence: None)
  Receive Date: 20150622
  Receipt Date: 20150622
  Transmission Date: 20150821
  Serious: Yes (Hospitalization)
  Sender: FDA-Public Use
  Company Number: None

PATIENT
  Age: 30 Year
  Sex: Male
  Weight: 72 kg

DRUGS (4)
  1. ACTIVATED CHARCOAL [Concomitant]
     Active Substance: ACTIVATED CHARCOAL
  2. MEFTAL-SPAS (DICYCLOMINE\MEFENAMIC ACID) [Suspect]
     Active Substance: DICYCLOMINE\MEFENAMIC ACID
     Indication: OROPHARYNGEAL DISCOMFORT
     Dosage: 1 PILL
     Route: 048
  3. ANALGESICS [Concomitant]
     Active Substance: UNSPECIFIED INGREDIENT
  4. MULTI VITAMINS [Concomitant]

REACTIONS (2)
  - Oropharyngeal discomfort [None]
  - Malaise [None]

NARRATIVE: CASE EVENT DATE: 20150617
